FAERS Safety Report 12725336 (Version 2)
Quarter: 2016Q4

REPORT INFORMATION
  Report Type: Spontaneous
  Country: US (occurrence: US)
  Receive Date: 20160908
  Receipt Date: 20161109
  Transmission Date: 20170207
  Serious: Yes (Death, Hospitalization)
  Sender: FDA-Public Use
  Company Number: US-ELI_LILLY_AND_COMPANY-US201609000233

PATIENT
  Age: 72 Year
  Sex: Female

DRUGS (6)
  1. CYRAMZA [Suspect]
     Active Substance: RAMUCIRUMAB
     Indication: NON-SMALL CELL LUNG CANCER STAGE IV
     Dosage: 776 MG, CYCLICAL
     Route: 042
     Dates: start: 20160613, end: 20160810
  2. DOCETAXEL. [Concomitant]
     Active Substance: DOCETAXEL
     Indication: NON-SMALL CELL LUNG CANCER
  3. XARELTO [Concomitant]
     Active Substance: RIVAROXABAN
  4. BENADRYL [Concomitant]
     Active Substance: DIPHENHYDRAMINE HYDROCHLORIDE
  5. PEPCID                             /00305201/ [Concomitant]
     Active Substance: ALUMINUM HYDROXIDE\MAGNESIUM CARBONATE
  6. DECADRON [Concomitant]
     Active Substance: DEXAMETHASONE

REACTIONS (3)
  - Septic shock [Fatal]
  - Intestinal perforation [Fatal]
  - Sepsis [Fatal]

NARRATIVE: CASE EVENT DATE: 20160810
